FAERS Safety Report 23909965 (Version 1)
Quarter: 2024Q2

REPORT INFORMATION
  Report Type: Report from Study
  Country: KR (occurrence: KR)
  Receive Date: 20240528
  Receipt Date: 20240528
  Transmission Date: 20240716
  Serious: Yes (Other)
  Sender: FDA-Public Use
  Company Number: KR-ASTELLAS-2024US003154

PATIENT
  Age: 58 Year
  Sex: Female
  Weight: 51.9 kg

DRUGS (21)
  1. TACROLIMUS [Suspect]
     Active Substance: TACROLIMUS
     Indication: Immunosuppressant drug therapy
     Route: 065
     Dates: start: 20230501, end: 20230524
  2. TACROLIMUS [Suspect]
     Active Substance: TACROLIMUS
     Route: 065
     Dates: start: 20230606, end: 20230620
  3. TACROLIMUS [Suspect]
     Active Substance: TACROLIMUS
     Dosage: 0.75 MG, ONCE DAILY
     Route: 065
     Dates: start: 20230621
  4. CYCLOSPORINE [Suspect]
     Active Substance: CYCLOSPORINE
     Indication: Product used for unknown indication
     Dosage: UNK UNK, UNKNOWN FREQ.
     Route: 065
  5. QUETIAPINE [Concomitant]
     Active Substance: QUETIAPINE
     Indication: Insomnia
     Route: 065
     Dates: start: 20220623, end: 20230801
  6. ZOLPIDEM TARTRATE [Concomitant]
     Active Substance: ZOLPIDEM TARTRATE
     Indication: Insomnia
     Route: 065
     Dates: start: 20230502, end: 20230801
  7. GLIMEPIRIDE [Concomitant]
     Active Substance: GLIMEPIRIDE
     Indication: Diabetes mellitus
     Route: 065
     Dates: start: 20220622, end: 20230520
  8. LEVOFLOXACIN [Concomitant]
     Active Substance: LEVOFLOXACIN
     Indication: Infection prophylaxis
     Route: 065
     Dates: start: 20230423, end: 20230501
  9. FEBUXOSTAT [Concomitant]
     Active Substance: FEBUXOSTAT
     Indication: Prophylaxis
     Route: 065
     Dates: start: 20221212, end: 20230520
  10. METRONIDAZOLE [Concomitant]
     Active Substance: METRONIDAZOLE
     Indication: Infection prophylaxis
     Route: 065
     Dates: start: 20230423, end: 20230522
  11. LEVETIRACETAM [Concomitant]
     Active Substance: LEVETIRACETAM
     Indication: Prophylaxis
     Route: 065
     Dates: start: 20230424, end: 20230429
  12. ATORVASTATIN CALCIUM [Concomitant]
     Active Substance: ATORVASTATIN CALCIUM
     Indication: Dyslipidaemia
     Route: 065
     Dates: start: 20220622, end: 20230520
  13. EPERISONE HYDROCHLORIDE [Concomitant]
     Active Substance: EPERISONE HYDROCHLORIDE
     Indication: Myalgia
     Route: 065
     Dates: start: 20220928, end: 20230520
  14. ESOMEPRAZOLE MAGNESIUM [Concomitant]
     Active Substance: ESOMEPRAZOLE MAGNESIUM
     Indication: Gastrointestinal disorder prophylaxis
     Route: 065
     Dates: start: 20230329
  15. PREDNISOLONE [Concomitant]
     Active Substance: PREDNISOLONE
     Indication: Adrenal insufficiency
     Route: 065
     Dates: start: 20230104, end: 20230730
  16. URSODIOL [Concomitant]
     Active Substance: URSODIOL
     Indication: Vascular disorder prophylaxis
     Route: 065
     Dates: start: 20230423, end: 20230522
  17. BUSULFAN [Concomitant]
     Active Substance: BUSULFAN
     Indication: Product used for unknown indication
     Route: 065
     Dates: start: 20230425, end: 20230428
  18. ALPROSTADIL [Concomitant]
     Active Substance: ALPROSTADIL
     Indication: Vascular disorder prophylaxis
     Route: 065
     Dates: start: 20230501, end: 20230513
  19. FLUDARABINE PHOSPHATE [Concomitant]
     Active Substance: FLUDARABINE PHOSPHATE
     Indication: Bone marrow conditioning regimen
     Route: 065
     Dates: start: 20230425, end: 20230430
  20. ACYCLOVIR [Concomitant]
     Active Substance: ACYCLOVIR
     Indication: Infection prophylaxis
     Route: 065
     Dates: start: 20230424, end: 20230601
  21. ACYCLOVIR [Concomitant]
     Active Substance: ACYCLOVIR
     Route: 065
     Dates: start: 20230601, end: 20230727

REACTIONS (21)
  - Erosive duodenitis [Unknown]
  - Klebsiella bacteraemia [Recovered/Resolved]
  - Pneumonia klebsiella [Recovered/Resolved]
  - Haematochezia [Recovering/Resolving]
  - Neuropathy peripheral [Not Recovered/Not Resolved]
  - Clostridium difficile infection [Recovered/Resolved]
  - Cytomegalovirus colitis [Not Recovered/Not Resolved]
  - Cytomegalovirus enteritis [Not Recovered/Not Resolved]
  - Pyrexia [Recovered/Resolved]
  - Diarrhoea [Recovered/Resolved]
  - Proctalgia [Recovered/Resolved]
  - Oral pain [Recovered/Resolved]
  - Abdominal pain upper [Not Recovered/Not Resolved]
  - Blood pressure increased [Not Recovered/Not Resolved]
  - Abdominal distension [Recovering/Resolving]
  - Anaemia [Recovering/Resolving]
  - Neutrophil count decreased [Recovered/Resolved]
  - Pruritus [Recovered/Resolved]
  - Diarrhoea [Not Recovered/Not Resolved]
  - Constipation [Recovered/Resolved]
  - Drug ineffective [Unknown]

NARRATIVE: CASE EVENT DATE: 20230502
